FAERS Safety Report 8250960-6 (Version None)
Quarter: 2012Q2

REPORT INFORMATION
  Report Type: 
  Country: None (occurrence: None)
  Receive Date: 20120402
  Receipt Date: 20120326
  Transmission Date: 20120825
  Serious: Yes (Other)
  Sender: FDA-Public Use
  Company Number: US-BAYER-2011-111448

PATIENT
  Age: 45 Year
  Sex: Female
  Weight: 77.098 kg

DRUGS (3)
  1. YASMIN [Suspect]
     Indication: CONTRACEPTION
     Dosage: UNK
     Dates: start: 20020901, end: 20080701
  2. DROSPIRENONE AND ETHINYL ESTRADIOL [Suspect]
     Indication: CONTRACEPTION
     Dosage: UNK
     Dates: start: 20080701, end: 20100801
  3. LEVOXYL [Concomitant]
     Indication: HYPOTHYROIDISM
     Dosage: 88 MCG/24HR, UNK
     Route: 048

REACTIONS (3)
  - AORTIC ANEURYSM [None]
  - INJURY [None]
  - HEART RATE INCREASED [None]
